FAERS Safety Report 4837905-3 (Version None)
Quarter: 2005Q4

REPORT INFORMATION
  Report Type: 
  Country: None (occurrence: None)
  Receive Date: 20051128
  Receipt Date: 20050920
  Transmission Date: 20060501
  Serious: Yes (Congenital Anomaly)
  Sender: FDA-Public Use
  Company Number: NL-GILEAD-2005-0008716

PATIENT
  Sex: Female
  Weight: 2.6 kg

DRUGS (4)
  1. VIREAD [Suspect]
     Route: 064
     Dates: end: 20050308
  2. COMBIVIR [Concomitant]
     Route: 064
     Dates: end: 20050221
  3. KALETRA [Concomitant]
     Route: 064
     Dates: end: 20050308
  4. RETROVIR [Concomitant]
     Route: 064
     Dates: start: 20050222, end: 20050308

REACTIONS (1)
  - CONGENITAL PYELOCALIECTASIS [None]
